FAERS Safety Report 5119283-8 (Version None)
Quarter: 2006Q3

REPORT INFORMATION
  Report Type: 
  Country: None (occurrence: None)
  Receive Date: 20060928
  Receipt Date: 20060919
  Transmission Date: 20061208
  Serious: Yes (Hospitalization)
  Sender: FDA-Public Use
  Company Number: SU-2006-004593

PATIENT
  Age: 68 Year
  Sex: Female
  Weight: 74.8435 kg

DRUGS (6)
  1. BENICAR HCT [Suspect]
     Indication: BLOOD PRESSURE
     Dosage: 20.125 MG QD PO
     Route: 048
     Dates: start: 20050101, end: 20050719
  2. TOPROL-XL [Concomitant]
  3. PLAVIX [Concomitant]
  4. LIPITOR [Concomitant]
  5. ASPIRIN [Concomitant]
  6. FOSAMAX [Concomitant]

REACTIONS (20)
  - ANGINA PECTORIS [None]
  - ARTERIOSCLEROSIS [None]
  - BLOOD PRESSURE INADEQUATELY CONTROLLED [None]
  - BUNDLE BRANCH BLOCK LEFT [None]
  - CARDIAC STRESS TEST ABNORMAL [None]
  - CARDIAC VALVE DISEASE [None]
  - CARDIOMYOPATHY [None]
  - CHEST DISCOMFORT [None]
  - CORONARY ARTERY DISEASE [None]
  - DILATATION ATRIAL [None]
  - DILATATION VENTRICULAR [None]
  - DIZZINESS [None]
  - HAEMORRHAGE [None]
  - HYPOPERFUSION [None]
  - HYPOTENSION [None]
  - HYPOVOLAEMIA [None]
  - MALAISE [None]
  - MITRAL VALVE INCOMPETENCE [None]
  - MYOCARDIAL ISCHAEMIA [None]
  - PAPILLARY MUSCLE DISORDER [None]
